FAERS Safety Report 6572542-4 (Version None)
Quarter: 2010Q1

REPORT INFORMATION
  Report Type: 
  Country: None (occurrence: None)
  Receive Date: 20100201
  Receipt Date: 20100122
  Transmission Date: 20100710
  Serious: Yes (Hospitalization, Other)
  Sender: FDA-Public Use
  Company Number: 2009-200092-NL

PATIENT
  Age: 47 Year
  Sex: Female
  Weight: 95.2554 kg

DRUGS (15)
  1. NUVARING [Suspect]
     Indication: HEADACHE
     Dates: start: 20050601, end: 20061111
  2. NUVARING [Suspect]
     Indication: MENSTRUATION IRREGULAR
     Dates: start: 20050601, end: 20061111
  3. EFFEXOR [Suspect]
     Indication: DRUG USE FOR UNKNOWN INDICATION
     Dosage: 150 MG; ; PO
     Route: 048
  4. NADOLOL [Concomitant]
  5. ALBUTEROL [Concomitant]
  6. SINGULAIR [Concomitant]
  7. ZOCOR [Concomitant]
  8. CLARITIN [Concomitant]
  9. GEODON [Concomitant]
  10. IMITREX [Concomitant]
  11. ZOLOFT [Concomitant]
  12. CLONAZEPAM [Concomitant]
  13. FLONASE [Concomitant]
  14. TEMAZEPAM [Concomitant]
  15. PREVACID [Concomitant]

REACTIONS (14)
  - ABDOMINAL DISCOMFORT [None]
  - BACK PAIN [None]
  - DIZZINESS [None]
  - EPICONDYLITIS [None]
  - GASTROOESOPHAGEAL REFLUX DISEASE [None]
  - HEADACHE [None]
  - LARYNGITIS [None]
  - OVARIAN CYST [None]
  - PANIC ATTACK [None]
  - PULMONARY EMBOLISM [None]
  - RHINITIS ALLERGIC [None]
  - SLEEP APNOEA SYNDROME [None]
  - SUPRAVENTRICULAR TACHYCARDIA [None]
  - VISUAL IMPAIRMENT [None]
